FAERS Safety Report 17661479 (Version 1)
Quarter: 2020Q2

REPORT INFORMATION
  Report Type: Spontaneous
  Country: US (occurrence: US)
  Receive Date: 20200413
  Receipt Date: 20200413
  Transmission Date: 20200713
  Serious: No
  Sender: FDA-Public Use
  Company Number: US-VERTEX PHARMACEUTICALS-2020-007720

PATIENT
  Age: 20 Year
  Sex: Female

DRUGS (2)
  1. XOLAIR [Concomitant]
     Active Substance: OMALIZUMAB
     Dosage: UNK, QD
  2. TRIKAFTA [Suspect]
     Active Substance: ELEXACAFTOR\IVACAFTOR\TEZACAFTOR
     Indication: CYSTIC FIBROSIS
     Dosage: 2TABLETS IN MORNING AND 1 TABLET IN EVENING (3 TABLETS), QD
     Route: 048
     Dates: start: 201911

REACTIONS (3)
  - Heart rate increased [Not Recovered/Not Resolved]
  - Headache [Not Recovered/Not Resolved]
  - Respiration abnormal [Not Recovered/Not Resolved]

NARRATIVE: CASE EVENT DATE: 20200203
